FAERS Safety Report 7379030-6 (Version None)
Quarter: 2011Q1

REPORT INFORMATION
  Report Type: 
  Country: None (occurrence: None)
  Receive Date: 20110328
  Receipt Date: 20110318
  Transmission Date: 20110831
  Serious: Yes (Hospitalization)
  Sender: FDA-Public Use
  Company Number: US-ABBOTT-10P-163-0634528-00

PATIENT
  Sex: Female
  Weight: 89.892 kg

DRUGS (14)
  1. HUMIRA [Suspect]
     Indication: CROHN'S DISEASE
     Route: 058
     Dates: start: 20070701
  2. LANSOPRAZOLE [Concomitant]
     Indication: GASTROOESOPHAGEAL REFLUX DISEASE
     Dates: start: 20071101
  3. FLORASTOR [Concomitant]
     Indication: GASTRIC DISORDER
     Dates: start: 20080207
  4. TRAZODONE [Concomitant]
     Indication: DEPRESSION
     Dates: start: 20071101
  5. ESCITALOPRAM OXALATE [Concomitant]
     Indication: DEPRESSION
     Dates: start: 20071101
  6. ZYRTEC [Concomitant]
     Indication: HYPERSENSITIVITY
     Dates: start: 20071101
  7. ADDERALL 10 [Concomitant]
     Indication: ATTENTION DEFICIT/HYPERACTIVITY DISORDER
     Dates: start: 20071106
  8. BUDESONIDE [Concomitant]
     Indication: HYPERSENSITIVITY
     Dates: start: 20081107
  9. BUDESONIDE [Concomitant]
     Dosage: 1 PUFF EACH NARES
     Route: 055
     Dates: start: 20071107
  10. ALBUTEROL SULFATE [Concomitant]
     Indication: ASTHMA
     Dosage: 2.5 MG/3 ML
     Dates: start: 20080207
  11. LOMOTIL [Concomitant]
     Indication: DIARRHOEA
     Dates: start: 20100121
  12. HUMIRA [Concomitant]
     Indication: CROHN'S DISEASE
     Route: 058
     Dates: start: 20070701
  13. POTASSIUM CHLORIDE [Concomitant]
     Indication: VITAMIN SUPPLEMENTATION
     Dates: start: 20080207
  14. PENTASA [Concomitant]
     Indication: CROHN'S DISEASE
     Dates: start: 20070227

REACTIONS (1)
  - ACUTE MYELOID LEUKAEMIA [None]
